FAERS Safety Report 25879156 (Version 3)
Quarter: 2025Q4

REPORT INFORMATION
  Report Type: Spontaneous
  Country: EU (occurrence: EU)
  Receive Date: 20251003
  Receipt Date: 20251015
  Transmission Date: 20260118
  Serious: Yes (Life-Threatening, Hospitalization, Other)
  Sender: SANDOZ
  Company Number: EU-NOVPHSZ-PHHY2019GR058474

PATIENT
  Age: 66 Year
  Sex: Female

DRUGS (22)
  1. AZACITIDINE [Suspect]
     Active Substance: AZACITIDINE
     Indication: Product used for unknown indication
     Dosage: UNK
     Route: 058
     Dates: start: 201704
  2. AZACITIDINE [Suspect]
     Active Substance: AZACITIDINE
     Dosage: X12
     Route: 058
     Dates: start: 201804
  3. AZACITIDINE [Suspect]
     Active Substance: AZACITIDINE
     Indication: Product used for unknown indication
     Dosage: X4
     Route: 058
     Dates: start: 201707
  4. AMOXICILLIN\CLAVULANIC ACID [Suspect]
     Active Substance: AMOXICILLIN\CLAVULANIC ACID
     Indication: Tooth abscess
     Dosage: UNK
     Route: 065
  5. CEFEPIME HYDROCHLORIDE [Suspect]
     Active Substance: CEFEPIME HYDROCHLORIDE
     Indication: Antibiotic therapy
     Dosage: UNK
     Route: 042
  6. COLISTIN [Suspect]
     Active Substance: COLISTIN
     Indication: Pneumonia
     Dosage: UNK
     Route: 065
  7. COLISTIN [Suspect]
     Active Substance: COLISTIN
     Indication: Antibiotic therapy
  8. FLAGYL [Suspect]
     Active Substance: METRONIDAZOLE\METRONIDAZOLE HYDROCHLORIDE
     Indication: Tooth abscess
     Dosage: UNK
     Route: 065
  9. GENTAMICIN [Suspect]
     Active Substance: GENTAMICIN
     Indication: Pneumonia
     Dosage: UNK
     Route: 065
  10. GENTAMICIN [Suspect]
     Active Substance: GENTAMICIN
     Indication: Antibiotic therapy
  11. HYDROXYUREA [Suspect]
     Active Substance: HYDROXYUREA
     Indication: Product used for unknown indication
     Dosage: UNK
     Route: 065
  12. LEVOFLOXACIN [Suspect]
     Active Substance: LEVOFLOXACIN
     Indication: Pneumonia
     Dosage: UNK
     Route: 065
  13. LEVOFLOXACIN [Suspect]
     Active Substance: LEVOFLOXACIN
     Indication: Pneumonia
  14. MEROPENEM [Suspect]
     Active Substance: MEROPENEM
     Indication: Pneumonia
     Dosage: UNK
     Route: 065
  15. MEROPENEM [Suspect]
     Active Substance: MEROPENEM
     Indication: Evidence based treatment
  16. MEROPENEM [Suspect]
     Active Substance: MEROPENEM
     Indication: Pneumonia
  17. PIPERACILLIN AND TAZOBACTAM [Suspect]
     Active Substance: PIPERACILLIN SODIUM\TAZOBACTAM SODIUM
     Indication: Pneumonia
     Dosage: UNK
     Route: 065
  18. PIPERACILLIN AND TAZOBACTAM [Suspect]
     Active Substance: PIPERACILLIN SODIUM\TAZOBACTAM SODIUM
     Indication: Pneumonia
  19. TIGECYCLINE [Suspect]
     Active Substance: TIGECYCLINE
     Indication: Pneumonia
     Dosage: UNK
     Route: 065
  20. TIGECYCLINE [Suspect]
     Active Substance: TIGECYCLINE
     Indication: Pneumonia
  21. TEICOPLANIN [Suspect]
     Active Substance: TEICOPLANIN
     Indication: Antibiotic therapy
     Dosage: UNK
     Route: 042
  22. VORICONAZOLE [Suspect]
     Active Substance: VORICONAZOLE
     Indication: Antifungal treatment
     Dosage: UNK
     Route: 065

REACTIONS (7)
  - Tonsillitis bacterial [Unknown]
  - Respiratory tract infection [Unknown]
  - Acute respiratory failure [Unknown]
  - Febrile neutropenia [Unknown]
  - Renal impairment [Unknown]
  - Haemodynamic instability [Unknown]
  - Pyrexia [Recovered/Resolved]
